FAERS Safety Report 5678002-7 (Version None)
Quarter: 2008Q1

REPORT INFORMATION
  Report Type: 
  Country: None (occurrence: None)
  Receive Date: 20080319
  Receipt Date: 20080307
  Transmission Date: 20080703
  Serious: Yes (Hospitalization)
  Sender: FDA-Public Use
  Company Number: 2008BI001399

PATIENT
  Age: 55 Year
  Sex: Female

DRUGS (1)
  1. AVONEX [Suspect]
     Indication: MULTIPLE SCLEROSIS
     Dosage: 30 UG; QW; IM
     Route: 030
     Dates: start: 20041101

REACTIONS (5)
  - CHILLS [None]
  - DISEASE COMPLICATION [None]
  - NEPHROLITHIASIS [None]
  - PYREXIA [None]
  - URETHRAL OBSTRUCTION [None]
